FAERS Safety Report 8548585-8 (Version None)
Quarter: 2012Q2

REPORT INFORMATION
  Report Type: 
  Country: None (occurrence: None)
  Receive Date: 20120416
  Receipt Date: 20110505
  Transmission Date: 20120825
  Serious: Yes (Other)
  Sender: FDA-Public Use
  Company Number: PHHY2011US38369

PATIENT
  Age: 59 Year
  Sex: Male
  Weight: 101.6 kg

DRUGS (2)
  1. HYDROCHLOROTHIAZIDE [Concomitant]
  2. DIOVAN [Suspect]
     Indication: HYPERTENSION
     Dosage: 80 MG, QD, ORAL
     Route: 048
     Dates: start: 20110314, end: 20110325

REACTIONS (1)
  - ANGIOEDEMA [None]
